FAERS Safety Report 9279511 (Version 1)
Quarter: 2013Q2

REPORT INFORMATION
  Report Type: Spontaneous
  Country: FR (occurrence: FR)
  Receive Date: 20130508
  Receipt Date: 20130508
  Transmission Date: 20140414
  Serious: Yes (Death, Hospitalization, Other)
  Sender: FDA-Public Use
  Company Number: FR-BRISTOL-MYERS SQUIBB COMPANY-18849174

PATIENT
  Age: 54 Year
  Sex: Female

DRUGS (12)
  1. REYATAZ CAPS 300 MG [Suspect]
     Route: 048
     Dates: start: 20100527, end: 20100608
  2. REYATAZ CAPS 300 MG [Suspect]
     Route: 048
     Dates: start: 20100527, end: 20100608
  3. METFORMIN HCL [Suspect]
     Route: 048
  4. NORVIR [Suspect]
     Route: 048
     Dates: start: 20100527, end: 20100608
  5. TRUVADA [Suspect]
     Dosage: 245MG
     Route: 048
     Dates: start: 20100527
  6. ISENTRESS [Suspect]
     Indication: HIV INFECTION
     Route: 048
     Dates: start: 20100608
  7. HUMALOG [Concomitant]
  8. EUPRESSYL [Concomitant]
  9. IPERTEN [Concomitant]
  10. VASTAREL [Concomitant]
  11. SEROPLEX [Concomitant]
  12. NISISCO [Concomitant]

REACTIONS (7)
  - Cardio-respiratory arrest [Fatal]
  - Renal failure acute [Fatal]
  - Decreased appetite [Unknown]
  - Gastrointestinal motility disorder [Unknown]
  - Vomiting [Unknown]
  - Depressed mood [Unknown]
  - Asthenia [Unknown]
